FAERS Safety Report 7170301-5 (Version None)
Quarter: 2010Q4

REPORT INFORMATION
  Report Type: 
  Country: None (occurrence: None)
  Receive Date: 20101217
  Receipt Date: 20101005
  Transmission Date: 20110411
  Serious: No
  Sender: FDA-Public Use
  Company Number: A0885912A

PATIENT
  Age: 34 Year
  Sex: Female

DRUGS (5)
  1. LAMICTAL XR [Suspect]
     Route: 048
  2. SABRIL [Suspect]
     Dosage: 1000MGD PER DAY
     Route: 048
     Dates: start: 20100801
  3. SERTRALINE [Concomitant]
     Dosage: 100MG PER DAY
     Route: 048
  4. VIMPAT [Concomitant]
     Dosage: 400MGD PER DAY
     Route: 048
  5. CLONAZEPAM [Concomitant]
     Dosage: 3MGD PER DAY
     Route: 048

REACTIONS (2)
  - IRRITABILITY [None]
  - VITREOUS FLOATERS [None]
